FAERS Safety Report 7121173-6 (Version None)
Quarter: 2010Q4

REPORT INFORMATION
  Report Type: 
  Country: None (occurrence: None)
  Receive Date: 20101124
  Receipt Date: 20101110
  Transmission Date: 20110411
  Serious: Yes (Other)
  Sender: FDA-Public Use
  Company Number: PHHY2010DE76864

PATIENT
  Age: 58 Year
  Sex: Female

DRUGS (7)
  1. ZOMETA [Suspect]
     Indication: METASTASES TO BONE
     Dosage: UNK
     Route: 042
     Dates: start: 20000101
  2. ENALAPRIL MALEATE [Concomitant]
  3. AROMASIN [Concomitant]
  4. SIMVASTATIN [Concomitant]
  5. XIPAMIDE [Concomitant]
  6. NITRENDIPINE [Concomitant]
  7. MINOCYCLINE [Concomitant]

REACTIONS (1)
  - OSTEONECROSIS OF JAW [None]
